FAERS Safety Report 6390484-4 (Version None)
Quarter: 2009Q4

REPORT INFORMATION
  Report Type: 
  Country: None (occurrence: None)
  Receive Date: 20091006
  Receipt Date: 20090827
  Transmission Date: 20100525
  Serious: No
  Sender: FDA-Public Use
  Company Number: US-BAYER-200913847BCC

PATIENT
  Sex: Female

DRUGS (1)
  1. ALEVE [Suspect]
     Indication: PAIN IN EXTREMITY
     Route: 048

REACTIONS (3)
  - MENORRHAGIA [None]
  - MENSTRUAL DISORDER [None]
  - MENSTRUATION DELAYED [None]
